FAERS Safety Report 7168199-4 (Version None)
Quarter: 2010Q4

REPORT INFORMATION
  Report Type: 
  Country: None (occurrence: None)
  Receive Date: 20101216
  Receipt Date: 20101215
  Transmission Date: 20110411
  Serious: Yes (Other)
  Sender: FDA-Public Use
  Company Number: US-PFIZER INC-2010121911

PATIENT
  Sex: Female
  Weight: 57.6 kg

DRUGS (7)
  1. CHANTIX [Suspect]
     Indication: SMOKING CESSATION THERAPY
     Dosage: 0.5 MG, 1X/DAY
     Route: 048
     Dates: start: 20100901
  2. CHANTIX [Suspect]
     Dosage: 1 MG, 2X/DAY
     Route: 048
     Dates: end: 20101001
  3. SITAGLIPTIN [Concomitant]
     Indication: DIABETES MELLITUS
     Dosage: HALF PILL, ONCE A DAY
  4. CYMBALTA [Concomitant]
     Indication: SLEEP DISORDER
     Dosage: UNK
  5. BONIVA [Concomitant]
     Indication: OSTEOPOROSIS
     Dosage: UNK
  6. ALEVE (CAPLET) [Concomitant]
     Dosage: UNK
  7. VITAMIN-MINERAL COMPOUND TAB [Concomitant]
     Indication: EYE DISORDER
     Dosage: UNK

REACTIONS (4)
  - ANXIETY [None]
  - CONFUSIONAL STATE [None]
  - PANIC ATTACK [None]
  - PERSONALITY DISORDER [None]
